FAERS Safety Report 5799409-3 (Version None)
Quarter: 2008Q3

REPORT INFORMATION
  Report Type: 
  Country: None (occurrence: None)
  Receive Date: 20080703
  Receipt Date: 20080627
  Transmission Date: 20090109
  Serious: Yes (Hospitalization)
  Sender: FDA-Public Use
  Company Number: FR-PFIZER INC-2008054671

PATIENT
  Sex: Female

DRUGS (7)
  1. XANAX [Suspect]
     Dates: start: 20071120, end: 20071120
  2. REMIFENTANIL [Suspect]
     Dates: start: 20071120, end: 20071120
  3. CIMETIDINE [Suspect]
     Dates: start: 20071120, end: 20071120
  4. HYDROXYZINE HCL [Suspect]
     Dates: start: 20071120, end: 20071120
  5. PROPOFOL [Suspect]
     Dates: start: 20071120, end: 20071120
  6. CEFAZOLIN [Suspect]
     Dates: start: 20071120, end: 20071120
  7. SUXAMETHONIUM [Concomitant]
     Dates: start: 20071120, end: 20071120

REACTIONS (1)
  - ANAPHYLACTIC SHOCK [None]
